FAERS Safety Report 6267313-2 (Version None)
Quarter: 2009Q3

REPORT INFORMATION
  Report Type: 
  Country: None (occurrence: None)
  Receive Date: 20090714
  Receipt Date: 20090708
  Transmission Date: 20100115
  Serious: Yes (Death)
  Sender: FDA-Public Use
  Company Number: US-GILEAD-2009-0022993

PATIENT
  Sex: Male
  Weight: 70.824 kg

DRUGS (21)
  1. LETAIRIS [Suspect]
     Indication: PULMONARY ARTERIAL HYPERTENSION
     Route: 048
     Dates: start: 20080911
  2. SPIRONOLACTONE [Concomitant]
  3. THEOPHYLLINE [Concomitant]
  4. SIMVASTATIN [Concomitant]
  5. FLOMAX [Concomitant]
  6. DARVOCET-N 100 [Concomitant]
  7. HUMULIN R [Concomitant]
  8. FUROSEMIDE [Concomitant]
  9. NOVOLIN 70/30 [Concomitant]
  10. DETROL [Concomitant]
  11. ALBUTEROL [Concomitant]
  12. AMLODIPINE [Concomitant]
  13. COUMADIN [Concomitant]
  14. DOXAZOSIN MESYLATE [Concomitant]
  15. SYMBICORT [Concomitant]
  16. NEXIUM [Concomitant]
  17. NAMENDA [Concomitant]
  18. ARICEPT [Concomitant]
  19. FEOSOL [Concomitant]
  20. POTASSIUM CHLORIDE [Concomitant]
  21. ZINC [Concomitant]

REACTIONS (1)
  - DEATH [None]
